FAERS Safety Report 5532009-9 (Version None)
Quarter: 2007Q4

REPORT INFORMATION
  Report Type: 
  Country: None (occurrence: None)
  Receive Date: 20071203
  Receipt Date: 20071126
  Transmission Date: 20080405
  Serious: Yes (Hospitalization, Other)
  Sender: FDA-Public Use
  Company Number: US-MERCK-0711USA04711

PATIENT
  Age: 82 Year
  Sex: Female

DRUGS (4)
  1. JANUVIA [Suspect]
     Indication: BLOOD GLUCOSE
     Route: 048
     Dates: start: 20071001
  2. CELEBREX [Concomitant]
     Route: 065
  3. TRAZODONE HYDROCHLORIDE [Concomitant]
     Route: 065
  4. ULTRAM [Concomitant]
     Route: 065

REACTIONS (2)
  - CORONARY ARTERY STENOSIS [None]
  - WEIGHT DECREASED [None]
